FAERS Safety Report 21296348 (Version 1)
Quarter: 2022Q3

REPORT INFORMATION
  Report Type: Spontaneous
  Country: JP (occurrence: JP)
  Receive Date: 20220906
  Receipt Date: 20220906
  Transmission Date: 20221026
  Serious: Yes (Hospitalization, Other)
  Sender: FDA-Public Use
  Company Number: JP-ALKEM LABORATORIES LIMITED-JP-ALKEM-2022-08709

PATIENT

DRUGS (2)
  1. MYCOPHENOLATE MOFETIL [Suspect]
     Active Substance: MYCOPHENOLATE MOFETIL
     Indication: Stem cell therapy
     Dosage: 1000 MILLIGRAM, QD
     Route: 065
  2. TACROLIMUS [Suspect]
     Active Substance: TACROLIMUS
     Indication: Stem cell therapy
     Dosage: 5-8 NG/ML 14 DAYS, 6-7 NG/ML AT 14-28 DAYS, 5-6 NG/ML AT 28-60 DAYS, AND 4-5 NG/ML AFTER 2 MONTHS
     Route: 065

REACTIONS (3)
  - Pneumonia bacterial [Unknown]
  - Transplant rejection [Unknown]
  - Herpes zoster [Unknown]
